FAERS Safety Report 5545913-2 (Version None)
Quarter: 2007Q4

REPORT INFORMATION
  Report Type: 
  Country: None (occurrence: None)
  Receive Date: 20071211
  Receipt Date: 20070926
  Transmission Date: 20080405
  Serious: No
  Sender: FDA-Public Use
  Company Number: US-ASTRAZENECA-2007UW22539

PATIENT
  Age: 66 Year
  Sex: Female

DRUGS (15)
  1. SYMBICORT [Suspect]
     Dosage: 160/4.5 MCG 2 PUFFS BID
     Route: 055
     Dates: start: 20070918
  2. ACTOS [Concomitant]
  3. GLUCOTROL [Concomitant]
  4. LASIX [Concomitant]
  5. ZAROXOLYN [Concomitant]
  6. ORPHENADRINE CITRATE [Concomitant]
  7. MICRO-K [Concomitant]
  8. ZYLOPRIM [Concomitant]
  9. REQUIP [Concomitant]
  10. ANTIVERT [Concomitant]
  11. NITROGLYCERIN [Concomitant]
  12. ULTRAM [Concomitant]
  13. SPIRIVA [Concomitant]
  14. EXFORGE [Concomitant]
  15. CELEXA [Concomitant]

REACTIONS (5)
  - HYPERSENSITIVITY [None]
  - LIP SWELLING [None]
  - RASH [None]
  - SWOLLEN TONGUE [None]
  - URTICARIA [None]
